FAERS Safety Report 9681946 (Version 3)
Quarter: 2014Q1

REPORT INFORMATION
  Report Type: Spontaneous
  Country: US (occurrence: US)
  Receive Date: 20131111
  Receipt Date: 20140107
  Transmission Date: 20141002
  Serious: Yes (Other)
  Sender: FDA-Public Use
  Company Number: US-CELGENEUS-163-21880-13101931

PATIENT
  Age: 76 Year
  Sex: Male
  Weight: 71.28 kg

DRUGS (22)
  1. REVLIMID [Suspect]
     Indication: PLASMA CELL MYELOMA
     Dosage: 10 MILLIGRAM
     Route: 048
     Dates: start: 201203, end: 2013
  2. REVLIMID [Suspect]
     Dosage: 15 MILLIGRAM
     Route: 048
     Dates: start: 201310
  3. ACTOS [Concomitant]
     Indication: PRODUCT USED FOR UNKNOWN INDICATION
     Dosage: 45 MILLIGRAM
     Route: 048
     Dates: start: 20110610
  4. CLARITHROMYCIN [Concomitant]
     Indication: PRODUCT USED FOR UNKNOWN INDICATION
     Dosage: 1000 MILLIGRAM
     Route: 048
     Dates: start: 20120320
  5. HUMALOG [Concomitant]
     Indication: PRODUCT USED FOR UNKNOWN INDICATION
     Dosage: 100 UNIT/ML
     Route: 058
     Dates: start: 20120320
  6. HYDROCORTISONE [Concomitant]
     Indication: PRODUCT USED FOR UNKNOWN INDICATION
     Dosage: 20 MILLIGRAM
     Route: 048
     Dates: start: 20120426
  7. LANTUS [Concomitant]
     Indication: PRODUCT USED FOR UNKNOWN INDICATION
     Dosage: 100 IU/ML
     Route: 058
     Dates: start: 20120320
  8. LISINOPRIL [Concomitant]
     Indication: PRODUCT USED FOR UNKNOWN INDICATION
     Dosage: 20 MILLIGRAM
     Route: 048
     Dates: start: 20111024
  9. LISINOPRIL [Concomitant]
     Dosage: 10 MILLIGRAM
     Route: 048
  10. MIRTAZAPINE [Concomitant]
     Indication: PRODUCT USED FOR UNKNOWN INDICATION
     Dosage: 15 MILLIGRAM
     Route: 048
     Dates: start: 20121129
  11. MORPHINE SULFATE [Concomitant]
     Indication: PAIN
     Dosage: 1-2 TABLETS
     Route: 048
     Dates: start: 20120320
  12. MULTIVITAMINS [Concomitant]
     Indication: PRODUCT USED FOR UNKNOWN INDICATION
     Route: 048
     Dates: start: 20110610
  13. ASPIRIN LOW DOSE [Concomitant]
     Indication: PRODUCT USED FOR UNKNOWN INDICATION
     Dosage: 81 MILLIGRAM
     Route: 048
     Dates: start: 20111121
  14. ASPIRIN LOW DOSE [Concomitant]
     Dosage: 325 MILLIGRAM
     Route: 048
  15. ZOMETA [Concomitant]
     Indication: PLASMA CELL MYELOMA
     Route: 041
     Dates: start: 201106
  16. ZOMETA [Concomitant]
     Indication: METASTASES TO BONE
     Dosage: 3-4MG
     Route: 041
     Dates: start: 201206
  17. DEXAMETHASONE [Concomitant]
     Indication: PLASMA CELL MYELOMA
     Route: 065
     Dates: start: 20110630
  18. DEXAMETHASONE [Concomitant]
     Dosage: 8 MILLIGRAM
     Route: 048
     Dates: start: 20131017
  19. BIAXIN [Concomitant]
     Indication: PLASMA CELL MYELOMA
     Dosage: 1000 MILLIGRAM
     Route: 048
     Dates: start: 201203
  20. LIPITOR [Concomitant]
     Indication: PRODUCT USED FOR UNKNOWN INDICATION
     Dosage: 2000 MILLIGRAM
     Route: 048
  21. LIPITOR [Concomitant]
     Dosage: 10 MILLIGRAM
     Route: 048
  22. VICODIN [Concomitant]
     Indication: PRODUCT USED FOR UNKNOWN INDICATION
     Dosage: 5/500
     Route: 065

REACTIONS (2)
  - Non-small cell lung cancer [Unknown]
  - Plasma cell myeloma [Recovering/Resolving]
